FAERS Safety Report 20721925 (Version 6)
Quarter: 2024Q4

REPORT INFORMATION
  Report Type: Spontaneous
  Country: US (occurrence: US)
  Receive Date: 20220418
  Receipt Date: 20241206
  Transmission Date: 20250114
  Serious: No
  Sender: PFIZER
  Company Number: US-PFIZER INC-202101169556

PATIENT
  Age: 78 Year
  Sex: Female

DRUGS (1)
  1. IBRANCE [Suspect]
     Active Substance: PALBOCICLIB
     Indication: Breast cancer female
     Dosage: 100 MG, CYCLIC  [TAKE 1 TABLET (100 MG) BY MOUTH DAILY IN THE MORNING X 21 DAYS, REST FOR 7]
     Route: 048

REACTIONS (1)
  - Pain [Unknown]
